FAERS Safety Report 6601408-6 (Version None)
Quarter: 2010Q1

REPORT INFORMATION
  Report Type: 
  Country: None (occurrence: None)
  Receive Date: 20100224
  Receipt Date: 20100224
  Transmission Date: 20100710
  Serious: Yes (Hospitalization)
  Sender: FDA-Public Use
  Company Number: None

PATIENT
  Sex: Female

DRUGS (3)
  1. DULOXETINE HYDROCHLORIDE [Suspect]
     Indication: DIARRHOEA
  2. DULOXETINE HYDROCHLORIDE [Suspect]
     Indication: NAUSEA
  3. DULOXETINE HYDROCHLORIDE [Suspect]
     Indication: VOMITING

REACTIONS (2)
  - HYPONATRAEMIA [None]
  - HYPOPHAGIA [None]
